FAERS Safety Report 11137649 (Version 2)
Quarter: 2015Q2

REPORT INFORMATION
  Report Type: Spontaneous
  Country: JP (occurrence: JP)
  Receive Date: 20150526
  Receipt Date: 20150526
  Transmission Date: 20150821
  Serious: Yes (Hospitalization, Other)
  Sender: FDA-Public Use
  Company Number: JP-WATSON-2015-10619

PATIENT
  Age: 65 Year
  Sex: Male

DRUGS (13)
  1. PAZUCROSS [Suspect]
     Active Substance: PAZUFLOXACIN MESILATE
     Indication: TENDONITIS
     Dosage: 300 MG, DAILY
     Route: 041
     Dates: start: 20150401
  2. PAZUCROSS [Suspect]
     Active Substance: PAZUFLOXACIN MESILATE
     Dosage: 300 MG, DAILY
     Route: 041
     Dates: start: 20150403
  3. DEPAS [Suspect]
     Active Substance: ETIZOLAM
     Indication: ANXIETY
     Dosage: 0.5 MG, DAILY
     Route: 048
  4. PAZUCROSS [Suspect]
     Active Substance: PAZUFLOXACIN MESILATE
     Dosage: 300 MG, DAILY
     Route: 041
     Dates: start: 20150406, end: 20150406
  5. FAMOTIDINE (UNKNOWN) [Suspect]
     Active Substance: FAMOTIDINE
     Indication: GASTROOESOPHAGEAL REFLUX DISEASE
     Dosage: 10 MG, DAILY
     Route: 048
  6. REGPARA [Suspect]
     Active Substance: CINACALCET HYDROCHLORIDE
     Indication: HYPERPARATHYROIDISM SECONDARY
     Dosage: 50 MG, DAILY
     Route: 048
  7. REBAMIPIDE [Suspect]
     Active Substance: REBAMIPIDE
     Indication: GASTRITIS
     Dosage: 200 MG, DAILY
     Route: 048
  8. NEXIUM [Suspect]
     Active Substance: ESOMEPRAZOLE MAGNESIUM
     Indication: GASTROOESOPHAGEAL REFLUX DISEASE
     Dosage: 20 MG, DAILY
     Route: 065
  9. TEPRENONE [Suspect]
     Active Substance: TEPRENONE
     Indication: GASTRITIS
     Dosage: 150 MG, DAILY
     Route: 048
  10. MEROPENEM (UNKNOWN) [Suspect]
     Active Substance: MEROPENEM
     Indication: PRODUCT USED FOR UNKNOWN INDICATION
     Dosage: UNK
     Route: 041
     Dates: start: 20150318, end: 20150331
  11. URSO [Suspect]
     Active Substance: URSODIOL
     Indication: LIVER DISORDER
     Dosage: 300 MG, DAILY
     Route: 048
  12. GOODMIN [Suspect]
     Active Substance: BROTIZOLAM
     Indication: INSOMNIA
     Dosage: 0.5 MG, DAILY
     Route: 048
  13. KIKLIN [Suspect]
     Active Substance: BIXALOMER
     Indication: HYPERPHOSPHATAEMIA
     Dosage: 1500 MG, DAILY
     Route: 048

REACTIONS (1)
  - Tendon rupture [Not Recovered/Not Resolved]
